FAERS Safety Report 9920177 (Version 2)
Quarter: 2014Q1

REPORT INFORMATION
  Report Type: Spontaneous
  Country: US (occurrence: US)
  Receive Date: 20140224
  Receipt Date: 20140224
  Transmission Date: 20141002
  Serious: Yes (Other)
  Sender: FDA-Public Use
  Company Number: US-BAXTER-2013BAX012881

PATIENT
  Age: 3 Year
  Sex: Male

DRUGS (2)
  1. FEIBA [Suspect]
     Indication: FACTOR IX DEFICIENCY
     Route: 042
  2. FEIBA [Suspect]
     Indication: HAEMORRHAGE

REACTIONS (5)
  - Rash [Recovered/Resolved]
  - Rash [Recovered/Resolved]
  - Alopecia [Unknown]
  - Erythema [Recovered/Resolved]
  - Generalised erythema [Recovered/Resolved]
